FAERS Safety Report 23822061 (Version 2)
Quarter: 2024Q2

REPORT INFORMATION
  Report Type: Spontaneous
  Country: PT (occurrence: PT)
  Receive Date: 20240506
  Receipt Date: 20240514
  Transmission Date: 20240716
  Serious: Yes (Other)
  Sender: FDA-Public Use
  Company Number: None

PATIENT
  Age: 70 Year
  Sex: Male

DRUGS (3)
  1. MORPHINE HYDROCHLORIDE [Suspect]
     Active Substance: MORPHINE HYDROCHLORIDE
     Indication: Cancer pain
     Dosage: 5 MG BOLUS ADMINISTRATION?SOLUTION FOR INJECTION
     Route: 042
     Dates: start: 20240415, end: 20240415
  2. MORPHINE [Concomitant]
     Active Substance: MORPHINE
     Indication: Product used for unknown indication
     Dosage: FORM OF ADMIN. TABLET (UNCOATED, ORAL)
  3. MORPHINE [Concomitant]
     Active Substance: MORPHINE
     Dosage: FORM OF ADMIN. PROLONGED-RELEASE TABLET

REACTIONS (2)
  - Infusion site pruritus [Recovered/Resolved]
  - Infusion site erythema [Recovered/Resolved]

NARRATIVE: CASE EVENT DATE: 20240415
